FAERS Safety Report 20733825 (Version 1)
Quarter: 2022Q2

REPORT INFORMATION
  Report Type: Report from Study
  Country: US (occurrence: US)
  Receive Date: 20220421
  Receipt Date: 20220421
  Transmission Date: 20220720
  Serious: Yes (Death, Other)
  Sender: FDA-Public Use
  Company Number: US-BRISTOL-MYERS SQUIBB COMPANY-2022-020310

PATIENT
  Age: 73 Year
  Sex: Female
  Weight: 50.3 kg

DRUGS (1)
  1. REVLIMID [Suspect]
     Active Substance: LENALIDOMIDE
     Indication: Plasma cell myeloma
     Dosage: FOR 21 DAYS AND 7 DAYS OFF
     Route: 048
     Dates: start: 20220218

REACTIONS (1)
  - Death [Fatal]

NARRATIVE: CASE EVENT DATE: 20220404
